FAERS Safety Report 4382650-4 (Version None)
Quarter: 2004Q2

REPORT INFORMATION
  Report Type: 
  Country: None (occurrence: None)
  Receive Date: 20040622
  Receipt Date: 20040604
  Transmission Date: 20050107
  Serious: Yes (Other)
  Sender: FDA-Public Use
  Company Number: GB-GLAXOSMITHKLINE-B0334988A

PATIENT
  Age: 15 Year
  Sex: Male

DRUGS (1)
  1. LAMIVUDINE [Suspect]

REACTIONS (1)
  - CARDIOMYOPATHY [None]
